FAERS Safety Report 4978014-2 (Version None)
Quarter: 2006Q2

REPORT INFORMATION
  Report Type: 
  Country: None (occurrence: None)
  Receive Date: 20060417
  Receipt Date: 20060407
  Transmission Date: 20061013
  Serious: Yes (Hospitalization)
  Sender: FDA-Public Use
  Company Number: 2006037356

PATIENT
  Age: 82 Year
  Sex: Male
  Weight: 89.8122 kg

DRUGS (11)
  1. LIPITOR [Suspect]
     Indication: BLOOD CHOLESTEROL INCREASED
     Dosage: 40 MG (40 MG, 1 IN 1 D)
  2. ASPIRIN [Concomitant]
  3. VICODIN ES [Concomitant]
  4. HUMALOG [Concomitant]
  5. HUMALOG [Concomitant]
  6. FOLTX (CYANOCOBALAMIN, FOLIC ACID, PYRIDOXINE) [Concomitant]
  7. MONOPRIL [Concomitant]
  8. HYDROCHLOROTHIAZIDE [Concomitant]
  9. ACIPHEX [Concomitant]
  10. MEGACE [Concomitant]
  11. DETROL LA [Concomitant]

REACTIONS (1)
  - CORONARY ARTERY OCCLUSION [None]
